FAERS Safety Report 15195579 (Version 1)
Quarter: 2018Q3

REPORT INFORMATION
  Report Type: Spontaneous
  Country: US (occurrence: US)
  Receive Date: 20180725
  Receipt Date: 20180725
  Transmission Date: 20181010
  Serious: Yes (Hospitalization, Other)
  Sender: FDA-Public Use
  Company Number: US-HIKMA PHARMACEUTICALS USA INC.-US-H14001-18-05912

PATIENT
  Age: 37 Year
  Sex: Female

DRUGS (11)
  1. METRONIDAZOLE. [Suspect]
     Active Substance: METRONIDAZOLE
     Route: 067
  2. ZINC SULFATE [Concomitant]
     Active Substance: ZINC SULFATE\ZINC SULFATE ANHYDROUS
     Indication: TRICHOMONIASIS
     Route: 067
  3. METRONIDAZOLE. [Suspect]
     Active Substance: METRONIDAZOLE
     Route: 048
  4. TINIDAZOLE. [Suspect]
     Active Substance: TINIDAZOLE
     Route: 048
  5. TINIDAZOLE TOPICAL PASTE [Suspect]
     Active Substance: TINIDAZOLE
     Indication: TRICHOMONIASIS
  6. METRONIDAZOLE. [Suspect]
     Active Substance: METRONIDAZOLE
     Route: 042
  7. METRONIDAZOLE. [Suspect]
     Active Substance: METRONIDAZOLE
     Route: 048
  8. PAROMOMYCIN [Concomitant]
     Active Substance: PAROMOMYCIN
     Indication: TRICHOMONIASIS
     Route: 067
  9. BORIC ACID [Concomitant]
     Active Substance: BORIC ACID
     Indication: TRICHOMONIASIS
     Route: 067
  10. TINIDAZOLE. [Suspect]
     Active Substance: TINIDAZOLE
     Indication: TRICHOMONIASIS
     Route: 048
  11. METRONIDAZOLE. [Suspect]
     Active Substance: METRONIDAZOLE
     Indication: TRICHOMONIASIS
     Route: 048

REACTIONS (3)
  - Nausea [Recovered/Resolved]
  - Vomiting [Recovered/Resolved]
  - Pathogen resistance [Recovered/Resolved]
